FAERS Safety Report 8764935 (Version 2)
Quarter: 2013Q2

REPORT INFORMATION
  Report Type: Spontaneous
  Country: US (occurrence: US)
  Receive Date: 20120903
  Receipt Date: 20130404
  Transmission Date: 20140414
  Serious: No
  Sender: FDA-Public Use
  Company Number: US-009507513-1208USA008437

PATIENT
  Sex: Male

DRUGS (1)
  1. ASMANEX TWISTHALER [Suspect]
     Dosage: 220 MICROGRAM, INHALATION BY MOUTH

REACTIONS (1)
  - Paraesthesia oral [Recovered/Resolved]
